FAERS Safety Report 9301541 (Version 1)
Quarter: 2013Q2

REPORT INFORMATION
  Report Type: Spontaneous
  Country: TW (occurrence: TW)
  Receive Date: 20130521
  Receipt Date: 20130521
  Transmission Date: 20140414
  Serious: Yes (Death, Other)
  Sender: FDA-Public Use
  Company Number: TW-ROCHE-1226942

PATIENT
  Age: 54 Year
  Sex: Male

DRUGS (2)
  1. AVASTIN [Suspect]
     Indication: BRAIN NEOPLASM
     Route: 065
  2. TEMOZOLOMIDE [Suspect]
     Indication: BRAIN NEOPLASM
     Route: 065

REACTIONS (4)
  - Death [Fatal]
  - Duodenal perforation [Unknown]
  - Asthenia [Unknown]
  - Epistaxis [Unknown]
